FAERS Safety Report 7292810-0 (Version None)
Quarter: 2011Q1

REPORT INFORMATION
  Report Type: 
  Country: None (occurrence: None)
  Receive Date: 20110215
  Receipt Date: 20110204
  Transmission Date: 20110831
  Serious: Yes (Hospitalization)
  Sender: FDA-Public Use
  Company Number: FR-SANOFI-AVENTIS-2011SA007564

PATIENT
  Age: 67 Year
  Sex: Female

DRUGS (4)
  1. MEPRONIZINE [Suspect]
     Indication: INTENTIONAL OVERDOSE
     Route: 048
     Dates: start: 20110121, end: 20110121
  2. EFFERALGAN CODEINE [Suspect]
     Indication: INTENTIONAL OVERDOSE
     Route: 048
     Dates: start: 20110121, end: 20110121
  3. STILNOX [Suspect]
     Indication: INTENTIONAL OVERDOSE
     Dosage: 2 BOXES
     Route: 048
     Dates: start: 20110121, end: 20110121
  4. TRANXENE [Suspect]
     Indication: INTENTIONAL OVERDOSE
     Route: 048
     Dates: start: 20110121, end: 20110121

REACTIONS (2)
  - MULTIPLE DRUG OVERDOSE INTENTIONAL [None]
  - DRUG LEVEL INCREASED [None]
